FAERS Safety Report 7187051-1 (Version None)
Quarter: 2010Q4

REPORT INFORMATION
  Report Type: 
  Country: None (occurrence: None)
  Receive Date: 20101222
  Receipt Date: 20100816
  Transmission Date: 20110411
  Serious: No
  Sender: FDA-Public Use
  Company Number: US-AMGEN-TCS420139

PATIENT

DRUGS (22)
  1. ENBREL [Suspect]
     Indication: RHEUMATOID ARTHRITIS
     Dosage: 50 MG, QWK
     Dates: start: 20100610
  2. ENBREL [Suspect]
     Indication: PSORIATIC ARTHROPATHY
  3. LEVOTHYROXINE SODIUM [Concomitant]
     Dosage: 50 A?G, QD
     Dates: start: 20040101
  4. ESCITALOPRAM OXALATE [Concomitant]
     Dosage: 15 MG, QD
     Dates: start: 20060101
  5. PRAMINPEXOLE DIHYDROCHLORIDE [Concomitant]
     Dosage: .125 MG, QD
     Dates: start: 20060101
  6. FOLIC ACID [Concomitant]
     Dosage: 1 MG, QD
     Dates: start: 20090101
  7. METHOTREXATE [Concomitant]
     Dosage: 2.5 MG, QD
     Dates: start: 20090101
  8. MONTELUKAST [Concomitant]
     Dosage: 10 MG, QD
     Dates: start: 20070101
  9. HYDROXYCHLOROQUINE [Concomitant]
     Dosage: 200 MG, BID
     Dates: start: 20090101
  10. TIZANIDINE HCL [Concomitant]
     Dosage: 2 MG, QD
     Dates: start: 20080101
  11. XALATAN [Concomitant]
     Dosage: .005 %, QD
     Route: 047
     Dates: start: 20070101
  12. LIDODERM [Concomitant]
     Dosage: 5 %, PRN
     Dates: start: 20080101
  13. MECLIZINE [Concomitant]
     Dosage: 25 MG, PRN
  14. CLINDAMYCIN [Concomitant]
     Dosage: UNK UNK, PRN
  15. CETIRIZINE HYDROCHLORIDE [Concomitant]
     Dosage: 10 MG, PRN
  16. DIPHENHYDRAMINE HYDROCHLORIDE [Concomitant]
     Dosage: 25 MG, PRN
  17. SALINE MIXTURE [Concomitant]
     Dosage: UNK UNK, PRN
     Route: 047
  18. ACETAMINOPHEN [Concomitant]
     Indication: PAIN
     Dosage: 500 MG, PRN
  19. COAL TAR [Concomitant]
     Indication: PSORIASIS
     Dosage: UNK UNK, QD
  20. VITALIPID NOVUM ADULT [Concomitant]
     Dosage: 5 MG, QD
     Dates: start: 20060101
  21. GUAIFENESIN [Concomitant]
     Dosage: 600 MG, PRN
  22. RANITIDINE HYDROCHLORIDE [Concomitant]
     Dosage: 150 MG, PRN

REACTIONS (4)
  - GOITRE [None]
  - INJECTION SITE ERYTHEMA [None]
  - INJECTION SITE REACTION [None]
  - INJECTION SITE SWELLING [None]
